FAERS Safety Report 7937162-5 (Version None)
Quarter: 2011Q4

REPORT INFORMATION
  Report Type: 
  Country: None (occurrence: None)
  Receive Date: 20111123
  Receipt Date: 20111116
  Transmission Date: 20120403
  Serious: Yes (Death, Hospitalization)
  Sender: FDA-Public Use
  Company Number: US-GLAXOSMITHKLINE-A0797163A

PATIENT
  Age: 70 Year
  Sex: Male
  Weight: 84.1 kg

DRUGS (1)
  1. AVANDIA [Suspect]
     Indication: DIABETES MELLITUS
     Dosage: 4MG PER DAY
     Route: 048
     Dates: end: 20051203

REACTIONS (2)
  - CARDIO-RESPIRATORY ARREST [None]
  - CORONARY ARTERY DISEASE [None]
